FAERS Safety Report 5236968-3 (Version None)
Quarter: 2007Q1

REPORT INFORMATION
  Report Type: 
  Country: None (occurrence: None)
  Receive Date: 20070209
  Receipt Date: 20070115
  Transmission Date: 20070707
  Serious: Yes (Other)
  Sender: FDA-Public Use
  Company Number: C-07-0002

PATIENT
  Age: 42 Year
  Sex: Female
  Weight: 83.4619 kg

DRUGS (2)
  1. SELENIUM SULFIDE [Suspect]
     Indication: DANDRUFF
     Dosage: 5-10ML TO SCLAP, RINSE
     Route: 056
     Dates: start: 20061229, end: 20070106
  2. LAVOXYL AND ORAL CONTRACEPTIVE PILL [Concomitant]

REACTIONS (5)
  - DERMATITIS CONTACT [None]
  - HYPERSENSITIVITY [None]
  - INCORRECT DOSE ADMINISTERED [None]
  - RASH [None]
  - STAPHYLOCOCCAL INFECTION [None]
